FAERS Safety Report 22067945 (Version 1)
Quarter: 2023Q1

REPORT INFORMATION
  Report Type: Spontaneous
  Country: IT (occurrence: IT)
  Receive Date: 20230307
  Receipt Date: 20230307
  Transmission Date: 20230418
  Serious: Yes (Other)
  Sender: FDA-Public Use
  Company Number: IT-002147023-NVSC2023IT047587

PATIENT
  Sex: Male

DRUGS (2)
  1. NILOTINIB [Suspect]
     Active Substance: NILOTINIB
     Indication: Philadelphia positive chronic myeloid leukaemia
     Dosage: 600 MG, QD (PER DAY)
     Route: 065
     Dates: start: 20120510, end: 2012
  2. NILOTINIB [Suspect]
     Active Substance: NILOTINIB
     Dosage: 400 MG, QD (PER DAY)
     Route: 065
     Dates: start: 20230124, end: 20230227

REACTIONS (4)
  - Carotid artery stenosis [Unknown]
  - Cardiotoxicity [Unknown]
  - Metabolic disorder [Unknown]
  - Loss of therapeutic response [Unknown]
